FAERS Safety Report 18432220 (Version 1)
Quarter: 2020Q4

REPORT INFORMATION
  Report Type: Spontaneous
  Country: CN (occurrence: CN)
  Receive Date: 20201027
  Receipt Date: 20201027
  Transmission Date: 20210114
  Serious: Yes (Other)
  Sender: FDA-Public Use
  Company Number: CN-PFIZER INC-2020413307

PATIENT
  Age: 54 Year
  Sex: Female

DRUGS (1)
  1. ANZATAX (PACLITAXEL) [Suspect]
     Active Substance: PACLITAXEL
     Indication: OVARIAN ADENOMA
     Dosage: 30 MG, 1X/DAY
     Route: 041
     Dates: start: 20200513, end: 20200513

REACTIONS (2)
  - Hypersensitivity [Recovering/Resolving]
  - Asphyxia [Recovering/Resolving]

NARRATIVE: CASE EVENT DATE: 20200513
